FAERS Safety Report 21548102 (Version 2)
Quarter: 2022Q4

REPORT INFORMATION
  Report Type: Spontaneous
  Country: TR (occurrence: TR)
  Receive Date: 20221103
  Receipt Date: 20221118
  Transmission Date: 20230112
  Serious: Yes (Other)
  Sender: FDA-Public Use
  Company Number: TR-TEVA-2022-TR-2821867

PATIENT
  Age: 33 Year
  Sex: Male

DRUGS (14)
  1. AZATHIOPRINE [Suspect]
     Active Substance: AZATHIOPRINE
     Indication: Behcet^s syndrome
     Dosage: ADDITIONAL INFO: ACTION TAKEN: INITIALLY WITHDRAWN AND THEN STARTED FOR NUMEROUS PAINFUL ULCER.
     Route: 065
  2. PREDNISOLONE [Suspect]
     Active Substance: PREDNISOLONE
     Indication: Behcet^s syndrome
     Dosage: 1 MG/KG DAILY;
     Route: 065
  3. CYCLOPHOSPHAMIDE [Suspect]
     Active Substance: CYCLOPHOSPHAMIDE
     Indication: Behcet^s syndrome
     Dosage: 1 GRAM FOR 1 MONTH
     Route: 065
  4. CYCLOPHOSPHAMIDE [Suspect]
     Active Substance: CYCLOPHOSPHAMIDE
     Dosage: 150 MG
     Route: 065
  5. CYCLOPHOSPHAMIDE [Suspect]
     Active Substance: CYCLOPHOSPHAMIDE
     Dosage: 1 CYCLE OF 1G CYCLOPHOSPHAMIDE WAS ADMINISTERED
     Route: 065
  6. COLCHICINE [Suspect]
     Active Substance: COLCHICINE
     Indication: Behcet^s syndrome
     Dosage: THREE TIMES A DAY , 0.5 MG
     Route: 065
  7. INFLIXIMAB [Suspect]
     Active Substance: INFLIXIMAB
     Indication: Behcet^s syndrome
     Dosage: 5 MG/KG
     Route: 065
  8. INFLIXIMAB [Suspect]
     Active Substance: INFLIXIMAB
     Dosage: 5MG/KG EVERY 6WEEKS
     Route: 065
  9. METHYLPREDNISOLONE [Suspect]
     Active Substance: METHYLPREDNISOLONE
     Indication: Behcet^s syndrome
     Dosage: 500MG WAS GIVEN FOR 3DAYS
     Route: 065
  10. METHYLPREDNISOLONE [Suspect]
     Active Substance: METHYLPREDNISOLONE
     Dosage: 48 MG
     Route: 065
  11. METHYLPREDNISOLONE [Suspect]
     Active Substance: METHYLPREDNISOLONE
     Dosage: 24 MILLIGRAM DAILY;
     Route: 065
  12. METHYLPREDNISOLONE [Suspect]
     Active Substance: METHYLPREDNISOLONE
     Dosage: SALVAGE TREATMENT WITH METHYLPREDNISOLONE 500MG PULSES FOR 3DAYS
     Route: 065
  13. METHYLPREDNISOLONE [Suspect]
     Active Substance: METHYLPREDNISOLONE
     Dosage: 48MG/DAY WAS CONTINUED
     Route: 065
  14. CYCLOSPORINE [Suspect]
     Active Substance: CYCLOSPORINE
     Indication: Behcet^s syndrome
     Dosage: 5 MG/KG DAILY;
     Route: 065

REACTIONS (3)
  - Osteonecrosis [Unknown]
  - Lymphopenia [Unknown]
  - Drug ineffective [Unknown]
